FAERS Safety Report 21509252 (Version 3)
Quarter: 2022Q4

REPORT INFORMATION
  Report Type: Report from Study
  Country: CA (occurrence: CA)
  Receive Date: 20221026
  Receipt Date: 20221108
  Transmission Date: 20230113
  Serious: Yes (Hospitalization, Other)
  Sender: FDA-Public Use
  Company Number: CA-HLS-202201925

PATIENT
  Age: 35 Year
  Sex: Male

DRUGS (2)
  1. CLOZARIL [Suspect]
     Active Substance: CLOZAPINE
     Indication: Product used for unknown indication
     Route: 048
     Dates: start: 20080513
  2. CLOZARIL [Suspect]
     Active Substance: CLOZAPINE
     Indication: Product used for unknown indication
     Dosage: ON CLOZARIL AS OF 6 MONTHS AGO (6 MONTHS PRIOR TO 21-OCT-2022)
     Route: 065
     Dates: start: 2022

REACTIONS (7)
  - Blood pressure increased [Unknown]
  - Left ventricular hypertrophy [Unknown]
  - Ischaemia [Unknown]
  - Sinus tachycardia [Unknown]
  - Electrocardiogram ST segment abnormal [Unknown]
  - Electrocardiogram T wave abnormal [Unknown]
  - Troponin increased [Recovered/Resolved]

NARRATIVE: CASE EVENT DATE: 20221018
